FAERS Safety Report 7383278-4 (Version None)
Quarter: 2011Q1

REPORT INFORMATION
  Report Type: 
  Country: None (occurrence: None)
  Receive Date: 20110330
  Receipt Date: 20110328
  Transmission Date: 20110831
  Serious: Yes (Other)
  Sender: FDA-Public Use
  Company Number: US-AMGEN-USASP2011016502

PATIENT
  Sex: Male

DRUGS (1)
  1. NPLATE [Suspect]
     Indication: IDIOPATHIC THROMBOCYTOPENIC PURPURA
     Dosage: UNK
     Dates: end: 20110101

REACTIONS (4)
  - THROMBOSIS [None]
  - MYELODYSPLASTIC SYNDROME [None]
  - EMBOLISM ARTERIAL [None]
  - HAEMATOLOGICAL MALIGNANCY [None]
